FAERS Safety Report 13313332 (Version 1)
Quarter: 2017Q1

REPORT INFORMATION
  Report Type: Spontaneous
  Country: CN (occurrence: CN)
  Receive Date: 20170309
  Receipt Date: 20170309
  Transmission Date: 20170428
  Serious: Yes (Hospitalization, Other)
  Sender: FDA-Public Use
  Company Number: CN-PFIZER INC-2017101832

PATIENT
  Age: 13 Year
  Sex: Male
  Weight: 43.5 kg

DRUGS (3)
  1. METHOTREXATE SODIUM. [Suspect]
     Active Substance: METHOTREXATE SODIUM
     Indication: TUMOUR TREATING FIELDS THERAPY
     Dosage: 5.5 G, 1X/DAY
     Route: 041
     Dates: start: 20170103, end: 20170103
  2. DEXAMETHASONE. [Concomitant]
     Active Substance: DEXAMETHASONE
     Indication: TUMOUR TREATING FIELDS THERAPY
     Dosage: UNK
     Route: 037
     Dates: start: 20170103
  3. CYTARABINE. [Concomitant]
     Active Substance: CYTARABINE
     Indication: TUMOUR TREATING FIELDS THERAPY
     Dosage: UNK
     Route: 037
     Dates: start: 20170103

REACTIONS (4)
  - Epistaxis [Not Recovered/Not Resolved]
  - Bone marrow failure [Unknown]
  - Mucosal erosion [Not Recovered/Not Resolved]
  - Rash erythematous [Not Recovered/Not Resolved]

NARRATIVE: CASE EVENT DATE: 20170105
